FAERS Safety Report 9275955 (Version 2)
Quarter: 2013Q2

REPORT INFORMATION
  Report Type: Spontaneous
  Country: US (occurrence: US)
  Receive Date: 20130507
  Receipt Date: 20130510
  Transmission Date: 20140414
  Serious: Yes (Other)
  Sender: FDA-Public Use
  Company Number: US-009507513-1305USA001786

PATIENT
  Age: 59 Year
  Sex: Female
  Weight: 104.76 kg

DRUGS (5)
  1. SAPHRIS [Suspect]
     Indication: SCHIZOPHRENIA
     Dosage: 10 MG, TABLET RAPID DISOLVE, BID
     Route: 060
     Dates: start: 20130301, end: 20130321
  2. SEPTRA DS [Concomitant]
     Indication: URINARY TRACT INFECTION
     Dosage: TOTAL DAILY DOSE 800-160
     Route: 048
     Dates: start: 20130201, end: 20130404
  3. HUMALOG [Concomitant]
     Dosage: UNK
     Route: 058
  4. LANTUS [Concomitant]
     Dosage: 45 UNITS
     Route: 058
  5. HALDOL [Concomitant]
     Dosage: 5 MG, BID
     Route: 048
     Dates: start: 20130215, end: 20130228

REACTIONS (2)
  - Joint swelling [Recovered/Resolved]
  - Oedema peripheral [Recovered/Resolved]
